FAERS Safety Report 12570536 (Version 1)
Quarter: 2016Q3

REPORT INFORMATION
  Report Type: Spontaneous
  Country: US (occurrence: US)
  Receive Date: 20160719
  Receipt Date: 20160719
  Transmission Date: 20161109
  Serious: Yes (Other)
  Sender: FDA-Public Use
  Company Number: US-NOVOPROD-500899

PATIENT
  Sex: Female

DRUGS (1)
  1. NOVOLOG MIX 70/30 [Suspect]
     Active Substance: INSULIN ASPART
     Indication: DIABETES MELLITUS
     Dosage: 23 U, QD
     Route: 058

REACTIONS (5)
  - Eye movement disorder [Unknown]
  - Blood glucose decreased [Unknown]
  - Pertussis [Unknown]
  - Blood glucose increased [Unknown]
  - Weight decreased [Unknown]
